FAERS Safety Report 17905898 (Version 2)
Quarter: 2020Q2

REPORT INFORMATION
  Report Type: Spontaneous
  Country: SK (occurrence: SK)
  Receive Date: 20200617
  Receipt Date: 20200621
  Transmission Date: 20200714
  Serious: Yes (Hospitalization, Other)
  Sender: FDA-Public Use
  Company Number: SK-ROCHE-2621560

PATIENT
  Age: 3 Year
  Sex: Male

DRUGS (3)
  1. CYCLOSPORINE. [Suspect]
     Active Substance: CYCLOSPORINE
     Indication: NEPHROTIC SYNDROME
     Dosage: UNK
     Route: 065
  2. RITUXIMAB. [Suspect]
     Active Substance: RITUXIMAB
     Indication: NEPHROTIC SYNDROME
     Dosage: UNK
     Route: 065
  3. FUROSEMIDE. [Suspect]
     Active Substance: FUROSEMIDE
     Indication: NEPHROTIC SYNDROME
     Dosage: UNK
     Route: 065

REACTIONS (9)
  - Swelling [Unknown]
  - Nephrotic syndrome [Recovering/Resolving]
  - Intentional product use issue [Unknown]
  - Confusional state [Unknown]
  - Altered state of consciousness [Recovered/Resolved]
  - Polyuria [Recovered/Resolved]
  - Dysarthria [Unknown]
  - Ascites [Unknown]
  - Off label use [Unknown]
